FAERS Safety Report 8134591-4 (Version None)
Quarter: 2012Q1

REPORT INFORMATION
  Report Type: 
  Country: None (occurrence: None)
  Receive Date: 20120214
  Receipt Date: 20120209
  Transmission Date: 20120608
  Serious: Yes (Other)
  Sender: FDA-Public Use
  Company Number: US-PFIZER INC-2012036517

PATIENT
  Sex: Female
  Weight: 163 kg

DRUGS (19)
  1. LIPITOR [Concomitant]
     Indication: BLOOD CHOLESTEROL INCREASED
     Dosage: UNK, DAILY
  2. PRISTIQ [Concomitant]
     Indication: DEPRESSION
  3. LAMICTAL [Concomitant]
     Indication: PANIC ATTACK
  4. PRISTIQ [Concomitant]
     Indication: PANIC ATTACK
  5. PRISTIQ [Concomitant]
     Indication: PERSONALITY DISORDER
  6. LAMICTAL [Concomitant]
     Indication: PERSONALITY DISORDER
  7. KLONOPIN [Concomitant]
     Indication: DEPRESSION
  8. CHANTIX [Suspect]
     Indication: SMOKING CESSATION THERAPY
     Dosage: 0.5 MG, DAILY
     Route: 048
     Dates: start: 20120101, end: 20120101
  9. PRISTIQ [Concomitant]
     Indication: BIPOLAR DISORDER
     Dosage: 50 MG, DAILY
  10. KLONOPIN [Concomitant]
     Indication: BIPOLAR DISORDER
     Dosage: 1 MG, 3X/DAY
  11. KLONOPIN [Concomitant]
     Indication: PERSONALITY DISORDER
  12. ZANTAC [Concomitant]
     Indication: DYSPEPSIA
     Dosage: UNK, DAILY
  13. LAMICTAL [Concomitant]
     Indication: BIPOLAR DISORDER
     Dosage: 300 MG, DAILY
  14. KLONOPIN [Concomitant]
     Indication: ANXIETY
  15. KLONOPIN [Concomitant]
     Indication: PANIC ATTACK
  16. METFORMIN [Concomitant]
     Indication: DIABETES MELLITUS
     Dosage: 500 MG, DAILY
  17. LAMICTAL [Concomitant]
     Indication: DEPRESSION
  18. PRISTIQ [Concomitant]
     Indication: ANXIETY
  19. LAMICTAL [Concomitant]
     Indication: ANXIETY

REACTIONS (5)
  - AGGRESSION [None]
  - HOMICIDAL IDEATION [None]
  - AGITATION [None]
  - PSYCHIATRIC SYMPTOM [None]
  - FEELING ABNORMAL [None]
